FAERS Safety Report 9809480 (Version 3)
Quarter: 2014Q4

REPORT INFORMATION
  Report Type: Spontaneous
  Country: US (occurrence: US)
  Receive Date: 20140110
  Receipt Date: 20141113
  Transmission Date: 20150529
  Serious: Yes (Other)
  Sender: FDA-Public Use
  Company Number: US-SANOFI-AVENTIS-2011SA079519

PATIENT
  Age: 62 Year
  Sex: Male

DRUGS (5)
  1. PLAVIX [Suspect]
     Active Substance: CLOPIDOGREL BISULFATE
     Indication: CORONARY ARTERIAL STENT INSERTION
     Dosage: TAKEN OFF PLAVIX FROM 12/8/2010 - 12/10/2010
     Route: 065
     Dates: start: 200901, end: 201012
  2. ASPIRIN. [Suspect]
     Active Substance: ASPIRIN
     Route: 065
  3. ASPIRIN. [Suspect]
     Active Substance: ASPIRIN
     Route: 065
  4. PLAVIX [Suspect]
     Active Substance: CLOPIDOGREL BISULFATE
     Indication: CORONARY ARTERIAL STENT INSERTION
     Dosage: TAKEN OFF PLAVIX FROM  5/21/2011 - 5/29/2011
     Route: 065
     Dates: end: 201105
  5. ASPIRIN. [Suspect]
     Active Substance: ASPIRIN
     Route: 065

REACTIONS (2)
  - Dementia [Unknown]
  - Gastrointestinal haemorrhage [Not Recovered/Not Resolved]

NARRATIVE: CASE EVENT DATE: 20101208
